FAERS Safety Report 8291480-2 (Version None)
Quarter: 2012Q2

REPORT INFORMATION
  Report Type: 
  Country: None (occurrence: None)
  Receive Date: 20120412
  Receipt Date: 20120330
  Transmission Date: 20120825
  Serious: Yes (Other)
  Sender: FDA-Public Use
  Company Number: DSA_56007_2012

PATIENT
  Sex: Female
  Weight: 62.1 kg

DRUGS (43)
  1. VINCRISTINE [Concomitant]
  2. PERCOCET [Concomitant]
  3. ZITHROMAX [Concomitant]
  4. NYSTATIN + TRIAMCINOLONE ACETONIDE [Concomitant]
  5. RITUXAN [Concomitant]
  6. LOPROX [Concomitant]
  7. ANAPROX [Concomitant]
  8. MAALOX /00091001/ [Concomitant]
  9. CEPHALEXIN [Concomitant]
  10. RITUXIMAB [Concomitant]
  11. DECADRON [Concomitant]
  12. PHENERGAN [Concomitant]
  13. HEPARIN [Concomitant]
  14. VERAMYST [Concomitant]
  15. MOTRIN [Concomitant]
  16. CIPROFLOXACIN HCL [Concomitant]
  17. ELIDEL [Suspect]
     Indication: DERMATITIS
     Dosage: (DF TOPICAL)
     Route: 061
     Dates: start: 20030101
  18. VALTREX [Concomitant]
  19. ADRIAMYCIN PFS [Concomitant]
  20. TYLENOL REGULAR [Concomitant]
  21. COLACE [Concomitant]
  22. AMBIEN [Concomitant]
  23. CLONAZEPAM [Concomitant]
  24. PROMETHAZINE [Concomitant]
  25. ZANTAC [Concomitant]
  26. AMOXICILLIN [Concomitant]
  27. TERCONAZOLE [Concomitant]
  28. METRONIDAZOLE [Concomitant]
  29. CIPROFLOXACIN [Concomitant]
  30. PROTONIX [Concomitant]
  31. BENADRYL EXPECTORANS [Concomitant]
  32. COMPAZINE [Concomitant]
  33. IBUPROFEN (ADVIL) [Concomitant]
  34. KLONOPIN [Concomitant]
  35. AZITHROMYCIN [Concomitant]
  36. TERAZOL /00871201/ [Concomitant]
  37. PREDNISONE TAB [Concomitant]
  38. ORTHO TRI-CYCLEN [Concomitant]
  39. ALLOPURINOL [Concomitant]
  40. CYTOXAN [Concomitant]
  41. MORPHINE [Concomitant]
  42. DOXYCYCLINE [Concomitant]
  43. METROGEL-VAGINAL /01317501/ [Concomitant]

REACTIONS (29)
  - DEEP VEIN THROMBOSIS [None]
  - SIMPLEX VIRUS TEST POSITIVE [None]
  - CHLAMYDIAL INFECTION [None]
  - DIZZINESS [None]
  - DYSPEPSIA [None]
  - PYELONEPHRITIS [None]
  - DIFFUSE LARGE B-CELL LYMPHOMA STAGE II [None]
  - INSOMNIA [None]
  - URINARY TRACT INFECTION [None]
  - CONJUNCTIVITIS VIRAL [None]
  - HYPOPHAGIA [None]
  - ABDOMINAL DISCOMFORT [None]
  - VIRAL INFECTION [None]
  - VOMITING [None]
  - UPPER RESPIRATORY TRACT INFECTION [None]
  - GASTROENTERITIS VIRAL [None]
  - KELOID SCAR [None]
  - CELLULITIS [None]
  - ORAL PAIN [None]
  - NON-HODGKIN'S LYMPHOMA [None]
  - FOOD POISONING [None]
  - ABDOMINAL PAIN UPPER [None]
  - PHARYNGITIS [None]
  - TOOTH DISORDER [None]
  - ASTHENIA [None]
  - NAUSEA [None]
  - ANAEMIA [None]
  - BLOOD LACTATE DEHYDROGENASE INCREASED [None]
  - ARTHROPATHY [None]
